FAERS Safety Report 5298444-1 (Version None)
Quarter: 2007Q2

REPORT INFORMATION
  Report Type: 
  Country: None (occurrence: None)
  Receive Date: 20070409
  Receipt Date: 20070328
  Transmission Date: 20071010
  Serious: Yes (Hospitalization)
  Sender: FDA-Public Use
  Company Number: 2007SP005736

PATIENT
  Age: 59 Year
  Sex: Male

DRUGS (1)
  1. TEMODAR [Suspect]
     Indication: MALIGNANT MELANOMA
     Dosage: 100 MG; ; PO
     Route: 048

REACTIONS (3)
  - DISEASE PROGRESSION [None]
  - GROIN PAIN [None]
  - THROMBOSIS [None]
